FAERS Safety Report 9961394 (Version 1)
Quarter: 2014Q1

REPORT INFORMATION
  Report Type: Spontaneous
  Country: FR (occurrence: FR)
  Receive Date: 20140305
  Receipt Date: 20140305
  Transmission Date: 20141002
  Serious: Yes (Hospitalization)
  Sender: FDA-Public Use
  Company Number: FR-SA-2014SA022391

PATIENT
  Age: 71 Year
  Sex: Male
  Weight: 92 kg

DRUGS (8)
  1. APROVEL [Suspect]
     Indication: PRODUCT USED FOR UNKNOWN INDICATION
     Dosage: STRENGTH: 150MG
     Route: 065
  2. ZEBINIX [Suspect]
     Indication: PRODUCT USED FOR UNKNOWN INDICATION
     Route: 065
  3. PREVISCAN [Concomitant]
  4. ALLOPURINOL [Concomitant]
  5. KARDEGIC [Concomitant]
  6. COLCHIMAX [Concomitant]
  7. LASILIX [Concomitant]
  8. TAHOR [Concomitant]

REACTIONS (4)
  - Somnolence [Unknown]
  - Wrong drug administered [Unknown]
  - Confusional state [Unknown]
  - Dysarthria [Unknown]
